FAERS Safety Report 8929293 (Version 1)
Quarter: 2012Q4

REPORT INFORMATION
  Report Type: Spontaneous
  Country: US (occurrence: None)
  Receive Date: 20121126
  Receipt Date: 20121126
  Transmission Date: 20130627
  Serious: Yes (Life-Threatening)
  Sender: FDA-Public Use
  Company Number: None

PATIENT
  Sex: Female

DRUGS (1)
  1. ENTEREG [Suspect]
     Indication: PROMOTION OF WOUND HEALING
     Route: 048

REACTIONS (1)
  - Anaphylactic reaction [None]
